FAERS Safety Report 25544937 (Version 4)
Quarter: 2025Q3

REPORT INFORMATION
  Report Type: Report from Study
  Country: US (occurrence: US)
  Receive Date: 20250711
  Receipt Date: 20250810
  Transmission Date: 20251020
  Serious: Yes (Hospitalization)
  Sender: ABBVIE
  Company Number: US-ABBVIE-6364705

PATIENT
  Age: 66 Year
  Sex: Female

DRUGS (2)
  1. VENCLEXTA [Suspect]
     Active Substance: VENETOCLAX
     Indication: Acute myeloid leukaemia
     Dosage: 14 DAYS ON, THEN 14 DAYS OFF OF A 28 DAY CYCLE.?DRUG END DATE--2025
     Route: 048
     Dates: start: 202505
  2. VENCLEXTA [Suspect]
     Active Substance: VENETOCLAX
     Indication: Acute myeloid leukaemia
     Dosage: 14 DAYS ON, THEN 14 DAYS OFF OF A 28 DAY CYCLE.
     Route: 048
     Dates: start: 20250601

REACTIONS (3)
  - Transfusion [Unknown]
  - Infection [Unknown]
  - Vision blurred [Unknown]

NARRATIVE: CASE EVENT DATE: 20250101
